FAERS Safety Report 9608577 (Version 2)
Quarter: 2013Q4

REPORT INFORMATION
  Report Type: Spontaneous
  Country: JP (occurrence: JP)
  Receive Date: 20131009
  Receipt Date: 20131025
  Transmission Date: 20140711
  Serious: Yes (Other)
  Sender: FDA-Public Use
  Company Number: JP-ELI_LILLY_AND_COMPANY-JP201310000629

PATIENT
  Age: 55 Year
  Sex: Female

DRUGS (4)
  1. ZYPREXA [Suspect]
     Indication: SCHIZOPHRENIA
     Dosage: 5 MG, UNK
     Route: 048
  2. GOODMIN [Concomitant]
     Indication: INSOMNIA
     Dosage: 0.25 MG, UNK
     Route: 048
  3. U PAN [Concomitant]
     Indication: INSOMNIA
     Dosage: 1.5 MG, QD
     Route: 048
  4. U PAN [Concomitant]
     Indication: ANXIETY

REACTIONS (2)
  - Epilepsy [Unknown]
  - Colon cancer [Unknown]
